FAERS Safety Report 15242743 (Version 3)
Quarter: 2018Q4

REPORT INFORMATION
  Report Type: Spontaneous
  Country: ZA (occurrence: ZA)
  Receive Date: 20180806
  Receipt Date: 20181012
  Transmission Date: 20190204
  Serious: Yes (Other)
  Sender: FDA-Public Use
  Company Number: ZA-AMGEN-ZAFSP2018095378

PATIENT
  Age: 55 Year
  Sex: Male
  Weight: 96.6 kg

DRUGS (1)
  1. ARANESP [Suspect]
     Active Substance: DARBEPOETIN ALFA
     Indication: ANAEMIA
     Dosage: 60 MUG, QWK
     Route: 065
     Dates: start: 201705

REACTIONS (2)
  - Drug effect incomplete [Not Recovered/Not Resolved]
  - Anaemia [Not Recovered/Not Resolved]
